FAERS Safety Report 8143915-3 (Version None)
Quarter: 2012Q1

REPORT INFORMATION
  Report Type: 
  Country: None (occurrence: None)
  Receive Date: 20120217
  Receipt Date: 20120206
  Transmission Date: 20120608
  Serious: Yes (Hospitalization)
  Sender: FDA-Public Use
  Company Number: FR-PFIZER INC-2012006055

PATIENT
  Age: 66 Year
  Sex: Male
  Weight: 85 kg

DRUGS (7)
  1. RAMIPRIL [Suspect]
     Indication: HYPERTENSION
     Dosage: 10 MG,DAILY
     Route: 048
     Dates: start: 20110101, end: 20111219
  2. IBUPROFEN [Suspect]
     Indication: PAIN IN EXTREMITY
     Route: 048
     Dates: start: 20110101, end: 20111219
  3. LYRICA [Concomitant]
     Indication: ANXIETY
     Dosage: 75 MG, 2X/DAY
     Route: 048
     Dates: start: 20111129
  4. BISOPROLOL FUMARATE [Concomitant]
     Indication: CARDIAC FAILURE CHRONIC
     Dosage: 1.25 MG, 2X/DAY
     Route: 048
     Dates: start: 20110101
  5. TRABECTEDIN [Suspect]
     Indication: SARCOMA
     Dosage: 1.5 MG/M2, EVERY 3 WEEKS
     Route: 042
     Dates: start: 20111213, end: 20111213
  6. PARACETAMOL [Concomitant]
  7. PARACETAMOL [Concomitant]
     Indication: PAIN IN EXTREMITY
     Dosage: 1 G, 3X/DAY
     Route: 048
     Dates: start: 20111129

REACTIONS (2)
  - RENAL FAILURE ACUTE [None]
  - HYPERKALAEMIA [None]
